FAERS Safety Report 15374783 (Version 1)
Quarter: 2018Q3

REPORT INFORMATION
  Report Type: Spontaneous
  Country: US (occurrence: US)
  Receive Date: 20180912
  Receipt Date: 20180912
  Transmission Date: 20181010
  Serious: No
  Sender: FDA-Public Use
  Company Number: US-TEVA-2018-US-951896

PATIENT
  Age: 24 Year
  Sex: Female

DRUGS (1)
  1. JUNEL FE 1/20 [Suspect]
     Active Substance: ETHINYL ESTRADIOL\NORETHINDRONE ACETATE
     Route: 065

REACTIONS (5)
  - Irritability [Unknown]
  - Headache [Unknown]
  - Weight increased [Unknown]
  - Fatigue [Unknown]
  - Muscle spasms [Unknown]
